FAERS Safety Report 7478185-2 (Version None)
Quarter: 2011Q2

REPORT INFORMATION
  Report Type: 
  Country: None (occurrence: None)
  Receive Date: 20110513
  Receipt Date: 20110504
  Transmission Date: 20111010
  Serious: Yes (Hospitalization)
  Sender: FDA-Public Use
  Company Number: PHHY2011CA26483

PATIENT
  Sex: Female

DRUGS (4)
  1. CLOZARIL [Suspect]
     Indication: SCHIZOPHRENIA
     Dosage: 700 MG, QID
     Route: 048
     Dates: start: 19990329
  2. NORVASC [Concomitant]
     Dosage: 2.5 MG, QD
  3. DIVALPROEX SODIUM [Concomitant]
  4. RAMIPRIL [Concomitant]
     Dosage: 5 MG, QD

REACTIONS (1)
  - URINARY TRACT INFECTION [None]
